FAERS Safety Report 4463091-8 (Version None)
Quarter: 2004Q3

REPORT INFORMATION
  Report Type: 
  Country: None (occurrence: None)
  Receive Date: 20040930
  Receipt Date: 20040916
  Transmission Date: 20050211
  Serious: Yes (Life-Threatening, Hospitalization, Other)
  Sender: FDA-Public Use
  Company Number: FR-ABBOTT-04P-056-0273672-00

PATIENT
  Age: 78 Year
  Sex: Female
  Weight: 50 kg

DRUGS (8)
  1. FENOFIBRATE [Suspect]
     Indication: HYPERCHOLESTEROLAEMIA
     Route: 048
     Dates: end: 20040812
  2. ATACAND [Suspect]
     Indication: HYPERTENSION
     Route: 048
     Dates: end: 20040812
  3. OXYBUTYNIN [Suspect]
     Indication: URINARY INCONTINENCE
     Dates: end: 20040812
  4. COLESTYRAMINE [Suspect]
     Indication: HYPERCHOLESTEROLAEMIA
     Dates: end: 20040812
  5. SILYMARIN [Suspect]
     Indication: DRUG USE FOR UNKNOWN INDICATION
     Route: 048
     Dates: end: 20040812
  6. DI-ANTALVIC [Suspect]
     Indication: HEADACHE
     Route: 048
     Dates: start: 20040811, end: 20040811
  7. DOLIPRANE [Suspect]
     Indication: HEADACHE
     Route: 048
     Dates: start: 20040811, end: 20040811
  8. PERFALGAN [Suspect]
     Indication: HEADACHE
     Route: 042
     Dates: start: 20040811, end: 20040812

REACTIONS (13)
  - ASTERIXIS [None]
  - BRAIN CONTUSION [None]
  - EOSINOPHILIA [None]
  - FALL [None]
  - HEADACHE [None]
  - HEPATIC FAILURE [None]
  - HEPATITIS FULMINANT [None]
  - HYPONATRAEMIA [None]
  - HYPOTENSION [None]
  - OPEN WOUND [None]
  - SOMNOLENCE [None]
  - THROMBOCYTOPENIA [None]
  - VOMITING [None]
